FAERS Safety Report 5342120-3 (Version None)
Quarter: 2007Q2

REPORT INFORMATION
  Report Type: 
  Country: None (occurrence: None)
  Receive Date: 20070413
  Receipt Date: 20061207
  Transmission Date: 20071010
  Serious: Yes (Other)
  Sender: FDA-Public Use
  Company Number: US-JNJFOC-20060801866

PATIENT
  Age: 82 Year
  Sex: Male
  Weight: 83.9154 kg

DRUGS (7)
  1. VIADUR [Suspect]
     Indication: PROSTATE CANCER
     Dosage: SEE IMAGE
     Route: 058
     Dates: start: 20060721
  2. ASPIRIN [Concomitant]
  3. LISINOPRIL [Concomitant]
  4. METOPROLOL TARTRATE [Concomitant]
  5. HYDROCHLOROTHIAZIDE [Concomitant]
  6. AVANDIA [Concomitant]
  7. ATORVASTATIN CALCIUM [Concomitant]

REACTIONS (9)
  - ARTHRITIS [None]
  - BONE PAIN [None]
  - DEPRESSION [None]
  - DYSURIA [None]
  - HOT FLUSH [None]
  - HYPERHIDROSIS [None]
  - MICTURITION URGENCY [None]
  - NOCTURIA [None]
  - POLLAKIURIA [None]
